FAERS Safety Report 13390711 (Version 1)
Quarter: 2017Q1

REPORT INFORMATION
  Report Type: Spontaneous
  Country: US (occurrence: US)
  Receive Date: 20170330
  Receipt Date: 20170330
  Transmission Date: 20170429
  Serious: Yes (Hospitalization)
  Sender: FDA-Public Use
  Company Number: None

PATIENT
  Age: 65 Year
  Sex: Male
  Weight: 90.72 kg

DRUGS (1)
  1. ERYTHROMYCIN. [Suspect]
     Active Substance: ERYTHROMYCIN
     Indication: INFECTION
     Dosage: 1 QID EYE
     Route: 031
     Dates: start: 20170108, end: 20170113

REACTIONS (5)
  - Lip swelling [None]
  - Eye swelling [None]
  - Dysphagia [None]
  - Eye pruritus [None]
  - Local swelling [None]

NARRATIVE: CASE EVENT DATE: 20170113
